FAERS Safety Report 6974512-0 (Version None)
Quarter: 2010Q3

REPORT INFORMATION
  Report Type: 
  Country: None (occurrence: None)
  Receive Date: 20100909
  Receipt Date: 20080707
  Transmission Date: 20110219
  Serious: No
  Sender: FDA-Public Use
  Company Number: US-WYE-H04966108

PATIENT
  Sex: Male

DRUGS (10)
  1. PROTONIX [Suspect]
     Route: 048
     Dates: start: 20080704, end: 20080707
  2. PREDNISONE [Concomitant]
  3. SYNTHROID [Concomitant]
  4. AMITRIPTYLINE HCL [Concomitant]
  5. GLIBENCLAMIDE [Concomitant]
  6. SIMVASTATIN [Concomitant]
  7. ZETIA [Concomitant]
  8. LORAZEPAM [Concomitant]
  9. COZAAR [Concomitant]
  10. METFORMIN [Concomitant]

REACTIONS (1)
  - CHROMATURIA [None]
